FAERS Safety Report 24527046 (Version 1)
Quarter: 2024Q4

REPORT INFORMATION
  Report Type: Report from Study
  Country: DE (occurrence: DE)
  Receive Date: 20241021
  Receipt Date: 20241021
  Transmission Date: 20250115
  Serious: Yes (Other)
  Sender: ROCHE
  Company Number: DE-ROCHE-10000108253

PATIENT

DRUGS (1)
  1. BEVACIZUMAB [Suspect]
     Active Substance: BEVACIZUMAB
     Indication: Neurofibromatosis
     Dosage: THREE TO SIX MONTHS WITH AN OPTION TO SWITCH TO LONGER INTERVALS THEREAFTER
     Route: 065

REACTIONS (7)
  - Fatigue [Unknown]
  - Nausea [Unknown]
  - Hypertension [Unknown]
  - Skin disorder [Unknown]
  - Hypoacusis [Unknown]
  - Deafness [Unknown]
  - Off label use [Unknown]
